FAERS Safety Report 7284269-4 (Version None)
Quarter: 2011Q1

REPORT INFORMATION
  Report Type: 
  Country: None (occurrence: None)
  Receive Date: 20110209
  Receipt Date: 20110203
  Transmission Date: 20110831
  Serious: Yes (Other)
  Sender: FDA-Public Use
  Company Number: GB-PFIZER INC-2011025530

PATIENT
  Age: 47 Year
  Sex: Female

DRUGS (2)
  1. PREMIQUE [Concomitant]
  2. CHAMPIX [Suspect]

REACTIONS (3)
  - POSTMENOPAUSAL HAEMORRHAGE [None]
  - NIGHT SWEATS [None]
  - PAIN IN EXTREMITY [None]
